FAERS Safety Report 16542814 (Version 1)
Quarter: 2019Q3

REPORT INFORMATION
  Report Type: Spontaneous
  Country: GB (occurrence: GB)
  Receive Date: 20190709
  Receipt Date: 20190709
  Transmission Date: 20191004
  Serious: Yes (Other)
  Sender: FDA-Public Use
  Company Number: GB-SUN PHARMACEUTICAL INDUSTRIES LTD-2019RR-213121

PATIENT
  Age: 67 Year
  Sex: Male
  Weight: 86 kg

DRUGS (1)
  1. ATORVASTATIN [Suspect]
     Active Substance: ATORVASTATIN
     Indication: BLOOD CHOLESTEROL INCREASED
     Dosage: 100 MILLIGRAM, UNK
     Route: 048
     Dates: start: 20150101

REACTIONS (3)
  - Muscle tightness [Unknown]
  - Pain in extremity [Not Recovered/Not Resolved]
  - Muscle strain [Not Recovered/Not Resolved]
